FAERS Safety Report 15122906 (Version 4)
Quarter: 2018Q4

REPORT INFORMATION
  Report Type: Report from Study
  Country: US (occurrence: US)
  Receive Date: 20180709
  Receipt Date: 20181015
  Transmission Date: 20190204
  Serious: Yes (Hospitalization)
  Sender: FDA-Public Use
  Company Number: US-ACTELION-A-NJ2018-174979

PATIENT
  Age: 69 Year
  Sex: Male
  Weight: 114.74 kg

DRUGS (7)
  1. BUMETANIDE. [Concomitant]
     Active Substance: BUMETANIDE
     Dosage: UNK
     Dates: start: 20180625
  2. UPTRAVI [Suspect]
     Active Substance: SELEXIPAG
     Indication: PULMONARY ARTERIAL HYPERTENSION
     Dosage: 600 MCG, BID
     Route: 048
  3. AMIODARONE [Concomitant]
     Active Substance: AMIODARONE
     Dosage: UNK
     Dates: start: 20180625
  4. ADCIRCA [Concomitant]
     Active Substance: TADALAFIL
  5. OXYCODONE [Concomitant]
     Active Substance: OXYCODONE
     Dosage: UNK
     Dates: start: 20180625
  6. UPTRAVI [Suspect]
     Active Substance: SELEXIPAG
     Dosage: 400MCG QAM / 600MCG QPM
     Route: 048
  7. OPSUMIT [Suspect]
     Active Substance: MACITENTAN
     Indication: PULMONARY ARTERIAL HYPERTENSION
     Dosage: 10 MG, QD
     Route: 048
     Dates: start: 20171214

REACTIONS (3)
  - Headache [Unknown]
  - Neck pain [Unknown]
  - Vascular graft [Recovering/Resolving]

NARRATIVE: CASE EVENT DATE: 20180625
